APPROVED DRUG PRODUCT: CARBOPLATIN
Active Ingredient: CARBOPLATIN
Strength: 150MG/VIAL
Dosage Form/Route: INJECTABLE;INJECTION
Application: A076162 | Product #002
Applicant: WATSON LABORATORIES INC AN INDIRECT WHOLLY OWNED SUB OF TEVA PHARMACEUTICALS USA INC
Approved: Oct 14, 2004 | RLD: No | RS: No | Type: DISCN